FAERS Safety Report 6244901-0 (Version None)
Quarter: 2009Q2

REPORT INFORMATION
  Report Type: 
  Country: None (occurrence: None)
  Receive Date: 20090625
  Receipt Date: 20090611
  Transmission Date: 20091009
  Serious: Yes (Other)
  Sender: FDA-Public Use
  Company Number: PHHY2009MX23233

PATIENT
  Age: 70 Year
  Sex: Female

DRUGS (3)
  1. DIOVAN HCT [Suspect]
     Indication: HYPERTENSION
     Dosage: 1 TABLET (160/25) MG
     Dates: start: 20081101, end: 20090601
  2. EUTIROX [Concomitant]
     Indication: THYROID DISORDER
     Dosage: 0.5 TABLET PER DAY
  3. AVANDAR (ND) [Concomitant]
     Indication: DIABETES MELLITUS
     Dosage: 1 TABLET PER DAY

REACTIONS (2)
  - HYPERTENSION [None]
  - WEIGHT INCREASED [None]
